FAERS Safety Report 7379856-9 (Version None)
Quarter: 2011Q1

REPORT INFORMATION
  Report Type: 
  Country: None (occurrence: None)
  Receive Date: 20110324
  Receipt Date: 20110324
  Transmission Date: 20110831
  Serious: Yes (Hospitalization)
  Sender: FDA-Public Use
  Company Number: None

PATIENT
  Age: 71 Year
  Sex: Male
  Weight: 99 kg

DRUGS (2)
  1. SIMVASTATIN [Suspect]
     Dosage: 80MG EVERY DAY PO
     Route: 048
     Dates: start: 19991028
  2. BISOPROLOL [Suspect]
     Dosage: 10 MG EVERY DAY PO
     Route: 048
     Dates: start: 20110210, end: 20110307

REACTIONS (1)
  - RHABDOMYOLYSIS [None]
